FAERS Safety Report 5212063-4 (Version None)
Quarter: 2007Q1

REPORT INFORMATION
  Report Type: 
  Country: None (occurrence: None)
  Receive Date: 20070118
  Receipt Date: 20070109
  Transmission Date: 20070707
  Serious: Yes (Other)
  Sender: FDA-Public Use
  Company Number: PHBS2007TR00657

PATIENT
  Age: 78 Year
  Sex: Female

DRUGS (1)
  1. ZOMETA [Suspect]
     Indication: BREAST CANCER
     Route: 065

REACTIONS (4)
  - DENTAL DISCOMFORT [None]
  - JAW OPERATION [None]
  - OSTEONECROSIS [None]
  - TOOTH EXTRACTION [None]
